FAERS Safety Report 11564498 (Version 1)
Quarter: 2015Q3

REPORT INFORMATION
  Report Type: Spontaneous
  Country: US (occurrence: US)
  Receive Date: 20150916
  Receipt Date: 20150916
  Transmission Date: 20151125
  Serious: No
  Sender: FDA-Public Use
  Company Number: US-ELI_LILLY_AND_COMPANY-US200903005299

PATIENT
  Age: 62 Year
  Sex: Female
  Weight: 53.52 kg

DRUGS (2)
  1. FORTEO [Suspect]
     Active Substance: TERIPARATIDE
     Indication: OSTEOPOROSIS
     Dosage: 20 UG, UNKNOWN
     Dates: start: 20090301
  2. CALCIUM [Concomitant]
     Active Substance: CALCIUM
     Dosage: 1200 MG, UNK
     Dates: end: 200903

REACTIONS (5)
  - Nausea [Unknown]
  - Palpitations [Unknown]
  - Dizziness [Unknown]
  - Blood parathyroid hormone decreased [Unknown]
  - Calcium ionised increased [Unknown]

NARRATIVE: CASE EVENT DATE: 200903
